FAERS Safety Report 9684240 (Version 1)
Quarter: 2013Q4

REPORT INFORMATION
  Report Type: Spontaneous
  Country: US (occurrence: US)
  Receive Date: 20131112
  Receipt Date: 20131112
  Transmission Date: 20140711
  Serious: Yes (Other)
  Sender: FDA-Public Use
  Company Number: US-VIIV HEALTHCARE LIMITED-A1049313A

PATIENT
  Age: 60 Year
  Sex: Male

DRUGS (1)
  1. SELZENTRY [Suspect]
     Indication: PRODUCT USED FOR UNKNOWN INDICATION
     Dosage: 150MG UNKNOWN
     Dates: start: 20130517

REACTIONS (2)
  - Cerebrovascular accident [Unknown]
  - Cognitive disorder [Unknown]
